FAERS Safety Report 6624796-3 (Version None)
Quarter: 2010Q1

REPORT INFORMATION
  Report Type: 
  Country: None (occurrence: None)
  Receive Date: 20100310
  Receipt Date: 20100304
  Transmission Date: 20100710
  Serious: Yes (Other)
  Sender: FDA-Public Use
  Company Number: BR-PFIZER INC-2010028467

PATIENT
  Age: 65 Year
  Sex: Male
  Weight: 75 kg

DRUGS (4)
  1. VIAGRA [Suspect]
     Indication: ERECTILE DYSFUNCTION
     Dosage: 25 MG, 1/2 TAB
     Route: 048
     Dates: start: 20040101
  2. VIAGRA [Suspect]
     Dosage: 50 MG, 1/4 TAB
     Dates: start: 20040101
  3. CAPTOPRIL [Concomitant]
     Indication: HYPERTENSION
     Dosage: UNK
  4. RIVOTRIL [Concomitant]
     Indication: SLEEP DISORDER
     Dosage: 0.5 MG, UNK

REACTIONS (3)
  - BLOOD PRESSURE INCREASED [None]
  - FLATULENCE [None]
  - HEART RATE INCREASED [None]
